FAERS Safety Report 6451844-6 (Version None)
Quarter: 2009Q4

REPORT INFORMATION
  Report Type: 
  Country: None (occurrence: None)
  Receive Date: 20091123
  Receipt Date: 20091110
  Transmission Date: 20100525
  Serious: Yes (Other)
  Sender: FDA-Public Use
  Company Number: TW-ELI_LILLY_AND_COMPANY-TW200911002581

PATIENT
  Age: 31 Year
  Sex: Female

DRUGS (3)
  1. ZYPREXA [Suspect]
     Dosage: UNK, UNKNOWN
     Route: 065
  2. BIPERIDEN HYDROCHLORIDE TAB [Concomitant]
     Dosage: 8 MG, UNK
  3. AMISULPRID [Concomitant]

REACTIONS (2)
  - PLEUROTHOTONUS [None]
  - TARDIVE DYSKINESIA [None]
